FAERS Safety Report 5282869-4 (Version None)
Quarter: 2007Q1

REPORT INFORMATION
  Report Type: 
  Country: None (occurrence: None)
  Receive Date: 20070321
  Receipt Date: 20070307
  Transmission Date: 20070707
  Serious: Yes (Death)
  Sender: FDA-Public Use
  Company Number: THYM-11350

PATIENT
  Age: 64 Year
  Sex: Male
  Weight: 72 kg

DRUGS (10)
  1. THYMOGLOBULIN [Suspect]
     Indication: APLASTIC ANAEMIA
     Dosage: 4.8 MG/KG QOD IV
     Route: 042
     Dates: start: 20070223, end: 20070227
  2. THYMOGLOBULIN [Suspect]
  3. THYMOGLOBULIN [Suspect]
  4. THYMOGLOBULIN [Suspect]
     Indication: APLASTIC ANAEMIA
     Dates: start: 20060901
  5. CYCLOSPORINE [Concomitant]
  6. OMEPRAZOLE [Concomitant]
  7. TRANEXAMIC AXID [Concomitant]
  8. FLUOXETINE [Concomitant]
  9. FLUCONAZOLE [Concomitant]
  10. PREDNISONE TAB [Concomitant]

REACTIONS (13)
  - CARDIO-RESPIRATORY ARREST [None]
  - CHILLS [None]
  - DYSPNOEA [None]
  - HAEMOGLOBINURIA [None]
  - HYPOKALAEMIA [None]
  - HYPOPERFUSION [None]
  - INFUSION RELATED REACTION [None]
  - METABOLIC ACIDOSIS [None]
  - MUSCLE CONTRACTURE [None]
  - POLYMYOSITIS [None]
  - RESPIRATORY DEPRESSION [None]
  - RESPIRATORY FAILURE [None]
  - RHABDOMYOLYSIS [None]
